FAERS Safety Report 20778420 (Version 2)
Quarter: 2022Q3

REPORT INFORMATION
  Report Type: Spontaneous
  Country: ES (occurrence: ES)
  Receive Date: 20220503
  Receipt Date: 20220909
  Transmission Date: 20221026
  Serious: Yes (Hospitalization, Other)
  Sender: FDA-Public Use
  Company Number: ES-TEVA-2022-ES-2033698

PATIENT
  Age: 36 Year
  Sex: Female

DRUGS (1)
  1. COPAXONE [Suspect]
     Active Substance: GLATIRAMER ACETATE
     Indication: Multiple sclerosis
     Route: 058
     Dates: start: 20180702

REACTIONS (12)
  - Multiple sclerosis [Unknown]
  - Magnetic resonance imaging head abnormal [Unknown]
  - Mental disorder [Recovering/Resolving]
  - Night sweats [Recovering/Resolving]
  - Oedema peripheral [Recovering/Resolving]
  - Injection site pain [Recovering/Resolving]
  - Injection site extravasation [Recovering/Resolving]
  - Injection site induration [Recovering/Resolving]
  - Injection site mass [Recovering/Resolving]
  - Visual impairment [Recovering/Resolving]
  - Weight decreased [Recovering/Resolving]
  - Bone disorder [Recovering/Resolving]

NARRATIVE: CASE EVENT DATE: 20180101
